FAERS Safety Report 7916201-1 (Version None)
Quarter: 2011Q4

REPORT INFORMATION
  Report Type: 
  Country: None (occurrence: None)
  Receive Date: 20111116
  Receipt Date: 20111020
  Transmission Date: 20120403
  Serious: No
  Sender: FDA-Public Use
  Company Number: US-BIOGENIDEC-2011BI012417

PATIENT
  Age: 33 Year
  Sex: Female

DRUGS (2)
  1. TYSABRI [Suspect]
     Indication: MULTIPLE SCLEROSIS
     Route: 042
     Dates: start: 20070611, end: 20080505
  2. TYSABRI [Suspect]
     Route: 042
     Dates: start: 20090205, end: 20100917

REACTIONS (2)
  - CAESAREAN SECTION [None]
  - LACTATION DISORDER [None]
